FAERS Safety Report 14774040 (Version 1)
Quarter: 2018Q2

REPORT INFORMATION
  Report Type: Spontaneous
  Country: DE (occurrence: DE)
  Receive Date: 20180418
  Receipt Date: 20180418
  Transmission Date: 20180711
  Serious: Yes (Hospitalization, Other)
  Sender: FDA-Public Use
  Company Number: DE-WEST-WARD PHARMACEUTICALS CORP.-DE-H14001-18-03002

PATIENT
  Sex: Male

DRUGS (6)
  1. DOXORUBICINE [Suspect]
     Active Substance: DOXORUBICIN
     Indication: B-CELL LYMPHOMA
     Dosage: 104 MG, Q2WK
     Route: 042
     Dates: start: 20170127
  2. PEGFILGRASTIM [Suspect]
     Active Substance: PEGFILGRASTIM
     Indication: B-CELL LYMPHOMA
     Dosage: 6 MG, Q2WK
     Route: 058
     Dates: start: 20170130
  3. RITUXIMAB. [Suspect]
     Active Substance: RITUXIMAB
     Indication: B-CELL LYMPHOMA
     Dosage: 780 MG, Q2WK
     Route: 042
     Dates: start: 20170123
  4. CYCLOPHOSPHAMIDE. [Suspect]
     Active Substance: CYCLOPHOSPHAMIDE
     Indication: B-CELL LYMPHOMA
     Dosage: 1560 MG, Q2WK
     Route: 042
     Dates: start: 20170127
  5. VINCRISTINE [Suspect]
     Active Substance: VINCRISTINE
     Indication: B-CELL LYMPHOMA
     Dosage: 4.16 MG, Q2WK
     Route: 042
     Dates: start: 20170127
  6. PREDNISONE. [Suspect]
     Active Substance: PREDNISONE
     Indication: B-CELL LYMPHOMA
     Dosage: 50-100 MG, DAILY MOST RECENT CYCLE NUMBER: 2, GIVEN PRIOR TO SAE ON 14/FEB/2017 (1 IN 2 WK) ()
     Route: 042

REACTIONS (3)
  - Acute abdomen [Not Recovered/Not Resolved]
  - Small intestinal perforation [Recovered/Resolved]
  - Neutrophil count decreased [Unknown]

NARRATIVE: CASE EVENT DATE: 20170214
